FAERS Safety Report 14020829 (Version 1)
Quarter: 2017Q3

REPORT INFORMATION
  Report Type: Report from Study
  Country: AR (occurrence: AR)
  Receive Date: 20170928
  Receipt Date: 20170928
  Transmission Date: 20171128
  Serious: Yes (Death, Hospitalization)
  Sender: FDA-Public Use
  Company Number: PHHY2017AR136904

PATIENT
  Sex: Male

DRUGS (1)
  1. ENTRESTO [Suspect]
     Active Substance: SACUBITRIL\VALSARTAN
     Indication: CARDIAC FAILURE CHRONIC
     Dosage: 100 MG, BID
     Route: 065

REACTIONS (9)
  - Dyspnoea [Fatal]
  - Productive cough [Fatal]
  - Coma [Unknown]
  - Cardiac disorder [Fatal]
  - Pneumonia [Fatal]
  - Bradycardia [Fatal]
  - Fall [Unknown]
  - Decreased appetite [Fatal]
  - Mobility decreased [Fatal]
